FAERS Safety Report 19638685 (Version 3)
Quarter: 2021Q4

REPORT INFORMATION
  Report Type: Spontaneous
  Country: CA (occurrence: CA)
  Receive Date: 20210729
  Receipt Date: 20211116
  Transmission Date: 20220303
  Serious: Yes (Hospitalization, Other)
  Sender: FDA-Public Use
  Company Number: CA-SA-SAC20210727000141

PATIENT
  Age: 75 Year
  Sex: Female

DRUGS (73)
  1. ARAVA [Suspect]
     Active Substance: LEFLUNOMIDE
     Indication: Product used for unknown indication
     Dosage: 20 MG, QD
     Route: 048
  2. PLAQUENIL [Suspect]
     Active Substance: HYDROXYCHLOROQUINE SULFATE
     Indication: Rheumatoid arthritis
     Dosage: 400 MG, QD
  3. NORTRIPTYLINE HYDROCHLORIDE [Suspect]
     Active Substance: NORTRIPTYLINE HYDROCHLORIDE
     Indication: Product used for unknown indication
     Dosage: UNK
  4. NORTRIPTYLINE HYDROCHLORIDE [Suspect]
     Active Substance: NORTRIPTYLINE HYDROCHLORIDE
     Dosage: UNK
  5. GABAPENTIN [Suspect]
     Active Substance: GABAPENTIN
     Indication: Product used for unknown indication
     Dosage: 100 MG, BID
     Route: 048
  6. GABAPENTIN [Suspect]
     Active Substance: GABAPENTIN
     Dosage: 100 MG, QOW
     Route: 048
  7. CELECOXIB [Suspect]
     Active Substance: CELECOXIB
     Indication: Arthritis
     Dosage: UNK
     Route: 048
  8. CELECOXIB [Suspect]
     Active Substance: CELECOXIB
     Indication: Arthritis
     Dosage: UNK
     Route: 048
  9. CELECOXIB [Suspect]
     Active Substance: CELECOXIB
     Indication: Adenomatous polyposis coli
     Dosage: UNK
  10. SULFASALAZINE [Suspect]
     Active Substance: SULFASALAZINE
     Indication: Rheumatoid arthritis
     Dosage: 2.5 MG
     Route: 048
  11. SULFASALAZINE [Suspect]
     Active Substance: SULFASALAZINE
     Dosage: 2.5 G
     Route: 048
  12. SULFASALAZINE [Suspect]
     Active Substance: SULFASALAZINE
     Dosage: 500 MG, QD
     Route: 048
  13. FENTANYL [Suspect]
     Active Substance: FENTANYL
     Indication: Product used for unknown indication
     Dosage: UNK
  14. FENTANYL [Suspect]
     Active Substance: FENTANYL
     Dosage: UNK
  15. HYDROXYCHLOROQUINE SULFATE [Suspect]
     Active Substance: HYDROXYCHLOROQUINE SULFATE
     Indication: Product used for unknown indication
     Dosage: 400 MG, QD
  16. HYDROXYCHLOROQUINE SULFATE [Suspect]
     Active Substance: HYDROXYCHLOROQUINE SULFATE
     Dosage: UNK
  17. METHOTREXATE [Suspect]
     Active Substance: METHOTREXATE
     Indication: Rheumatoid arthritis
     Dosage: 1 DF, QW
     Route: 058
  18. METHOTREXATE [Suspect]
     Active Substance: METHOTREXATE
     Dosage: UNK
     Route: 058
  19. MYOCHRYSINE [Suspect]
     Active Substance: GOLD SODIUM THIOMALATE
     Indication: Rheumatoid arthritis
     Dosage: 50 MG
     Route: 030
  20. MYOCHRYSINE [Suspect]
     Active Substance: GOLD SODIUM THIOMALATE
     Dosage: 60 MG
     Route: 030
  21. OXYCODONE HYDROCHLORIDE [Suspect]
     Active Substance: OXYCODONE HYDROCHLORIDE
     Indication: Product used for unknown indication
     Dosage: 750 MG, QM
     Route: 065
  22. ORENCIA [Suspect]
     Active Substance: ABATACEPT
     Indication: Rheumatoid arthritis
     Dosage: 750 MG
     Route: 042
  23. ORENCIA [Suspect]
     Active Substance: ABATACEPT
     Dosage: 750 MG
     Route: 042
  24. ORENCIA [Suspect]
     Active Substance: ABATACEPT
     Dosage: 750 MG, QM
     Route: 042
  25. ORENCIA [Suspect]
     Active Substance: ABATACEPT
     Dosage: 75 MG
     Route: 042
  26. ORENCIA [Suspect]
     Active Substance: ABATACEPT
     Dosage: 1 DF, QW
     Route: 058
  27. ORENCIA [Suspect]
     Active Substance: ABATACEPT
     Dosage: 75 MG, Q4W
     Route: 058
  28. ACTEMRA [Suspect]
     Active Substance: TOCILIZUMAB
     Indication: Rheumatoid arthritis
     Dosage: 488 MG
     Route: 042
  29. ACTEMRA [Suspect]
     Active Substance: TOCILIZUMAB
     Dosage: 488 MG, QM
     Route: 042
  30. ENBREL [Suspect]
     Active Substance: ETANERCEPT
     Indication: Rheumatoid arthritis
     Dosage: 50 MG, QW
     Route: 058
  31. ENBREL [Suspect]
     Active Substance: ETANERCEPT
     Dosage: 50 MG, QIW
     Route: 058
  32. ENBREL [Suspect]
     Active Substance: ETANERCEPT
     Dosage: 50 MG, BID
     Route: 058
  33. ACETAMINOPHEN [Concomitant]
     Active Substance: ACETAMINOPHEN
     Indication: Product used for unknown indication
     Dosage: 1000 MG, QD
     Route: 048
  34. ACETAMINOPHEN\OXYCODONE HYDROCHLORIDE [Concomitant]
     Active Substance: ACETAMINOPHEN\OXYCODONE HYDROCHLORIDE
     Indication: Pain
     Dosage: UNK
     Route: 065
  35. CALCIUM [Concomitant]
     Active Substance: CALCIUM
     Indication: Product used for unknown indication
     Dosage: UNK UNK, QD
     Route: 065
  36. .ALPHA.-TOCOPHEROL, D- [Concomitant]
     Active Substance: .ALPHA.-TOCOPHEROL, D-
     Indication: Product used for unknown indication
     Dosage: 1200 MG, BID
     Route: 065
  37. DIPHENOXYLATE HYDROCHLORIDE [Concomitant]
     Active Substance: DIPHENOXYLATE HYDROCHLORIDE
     Indication: Product used for unknown indication
     Dosage: 1 DF, QD
     Route: 065
  38. DIPHENOXYLATE HYDROCHLORIDE [Concomitant]
     Active Substance: DIPHENOXYLATE HYDROCHLORIDE
     Dosage: 2.5 MG, QD
     Route: 065
  39. DIPHENOXYLATE HYDROCHLORIDE [Concomitant]
     Active Substance: DIPHENOXYLATE HYDROCHLORIDE
     Dosage: UNK, QD
     Route: 065
  40. VITAMIN D2 [Concomitant]
     Active Substance: ERGOCALCIFEROL
     Indication: Product used for unknown indication
     Dosage: 1 DF, QH
  41. VITAMIN D2 [Concomitant]
     Active Substance: ERGOCALCIFEROL
     Dosage: UNK, QH
     Route: 065
  42. ESOMEPRAZOLE [Concomitant]
     Active Substance: ESOMEPRAZOLE
     Indication: Product used for unknown indication
     Dosage: UNK
     Route: 065
  43. ESOMEPRAZOLE MAGNESIUM [Concomitant]
     Active Substance: ESOMEPRAZOLE MAGNESIUM
     Indication: Product used for unknown indication
     Dosage: 40 MG, BID
     Route: 065
  44. FERROUS GLUCONATE [Concomitant]
     Active Substance: FERROUS GLUCONATE
     Indication: Product used for unknown indication
     Dosage: 300 MG, QD
  45. HYPROMELLOSE 2910 (4000 MPA.S) [Concomitant]
     Active Substance: HYPROMELLOSE 2910 (4000 MPA.S)
     Indication: Dry eye
     Dosage: UNK
     Route: 065
  46. HYPROMELLOSE 2910 (4000 MPA.S) [Concomitant]
     Active Substance: HYPROMELLOSE 2910 (4000 MPA.S)
     Dosage: UNK
     Route: 065
  47. LOPERAMIDE HYDROCHLORIDE [Concomitant]
     Active Substance: LOPERAMIDE HYDROCHLORIDE
     Indication: Product used for unknown indication
     Dosage: 2.5 MG, QD
     Route: 065
  48. NASONEX [Concomitant]
     Active Substance: MOMETASONE FUROATE
     Indication: Product used for unknown indication
     Dosage: 2 DF, BID
  49. FISH OIL [Concomitant]
     Active Substance: FISH OIL
     Indication: Product used for unknown indication
     Dosage: 1200 MG, BID
     Route: 065
  50. FISH OIL [Concomitant]
     Active Substance: FISH OIL
     Dosage: UNK
  51. FISH OIL [Concomitant]
     Active Substance: FISH OIL
     Dosage: UNK
  52. FISH OIL [Concomitant]
     Active Substance: FISH OIL
     Dosage: UNK
  53. FISH OIL [Concomitant]
     Active Substance: FISH OIL
     Dosage: 1200 MG, BID
  54. OXYCODONE TEREPHTHALATE [Concomitant]
     Active Substance: OXYCODONE TEREPHTHALATE
     Indication: Pain
     Dosage: UNK
     Route: 065
  55. PANTOPRAZOLE [Concomitant]
     Active Substance: PANTOPRAZOLE
     Indication: Product used for unknown indication
     Dosage: UNK
  56. PREDNISONE [Concomitant]
     Active Substance: PREDNISONE
     Indication: Product used for unknown indication
     Dosage: 5 MG, QD
  57. PREDNISONE [Concomitant]
     Active Substance: PREDNISONE
     Dosage: 5 MG
  58. RISEDRONATE SODIUM [Concomitant]
     Active Substance: RISEDRONATE SODIUM
     Indication: Product used for unknown indication
     Dosage: 36 MG, QW
     Route: 065
  59. RISEDRONATE SODIUM [Concomitant]
     Active Substance: RISEDRONATE SODIUM
     Dosage: 36 MG, QW
  60. TRAZODONE HYDROCHLORIDE [Concomitant]
     Active Substance: TRAZODONE HYDROCHLORIDE
     Indication: Product used for unknown indication
     Dosage: 50 MG, QH
     Route: 048
  61. CHOLECALCIFEROL [Concomitant]
     Active Substance: CHOLECALCIFEROL
     Indication: Product used for unknown indication
     Dosage: UNK, QD
  62. ZOLEDRONIC ACID [Concomitant]
     Active Substance: ZOLEDRONIC ACID
     Indication: Product used for unknown indication
  63. OMEGA-3 FATTY ACIDS [Concomitant]
     Active Substance: OMEGA-3 FATTY ACIDS
     Indication: Product used for unknown indication
     Dosage: 1200 MG, BID
  64. NICOTINAMIDE [Concomitant]
     Active Substance: NIACINAMIDE
     Indication: Product used for unknown indication
     Dosage: UNK
     Route: 065
  65. ACLASTA [Concomitant]
     Active Substance: ZOLEDRONIC ACID
     Indication: Product used for unknown indication
     Dosage: 750 MG
     Route: 042
  66. TYLENOL [Concomitant]
     Active Substance: ACETAMINOPHEN
     Indication: Pain
     Dosage: 1000 MG, QH
  67. TYLENOL [Concomitant]
     Active Substance: ACETAMINOPHEN
     Dosage: 1000 MG, QD
  68. NEXIUM SANDOZ [Concomitant]
     Indication: Product used for unknown indication
     Dosage: 40 MG, BID
  69. NORTRIPTYLINE HYDROCHLORIDE [Concomitant]
     Active Substance: NORTRIPTYLINE HYDROCHLORIDE
     Indication: Dry eye
     Dosage: 10 GBQ, QH
  70. NORTRIPTYLINE HYDROCHLORIDE [Concomitant]
     Active Substance: NORTRIPTYLINE HYDROCHLORIDE
     Dosage: 10 MG, QH
     Route: 048
  71. GABAPENTIN [Concomitant]
     Active Substance: GABAPENTIN
     Indication: Product used for unknown indication
     Dosage: 100 MG, BID
     Route: 048
  72. NEXIUM [ESOMEPRAZOLE MAGNESIUM TRIHYDRATE] [Concomitant]
     Indication: Product used for unknown indication
     Dosage: 40 MG, BID
     Route: 065
  73. FISH OIL [Concomitant]
     Active Substance: FISH OIL
     Indication: Product used for unknown indication
     Dosage: UNK
     Route: 065

REACTIONS (45)
  - Blood creatinine increased [Unknown]
  - Blood magnesium increased [Unknown]
  - Blood potassium increased [Unknown]
  - Cyst [Unknown]
  - Deformity [Unknown]
  - Drug intolerance [Unknown]
  - Sleep disorder [Unknown]
  - Bone cyst [Unknown]
  - Crohn^s disease [Unknown]
  - Presbyacusis [Unknown]
  - Deafness neurosensory [Unknown]
  - Pleural thickening [Unknown]
  - Dry eye [Unknown]
  - Exostosis [Unknown]
  - Fatigue [Unknown]
  - Gastrointestinal disorder [Unknown]
  - Hypersensitivity [Unknown]
  - Infection [Unknown]
  - Joint swelling [Unknown]
  - Mobility decreased [Unknown]
  - Musculoskeletal stiffness [Unknown]
  - Myocardial infarction [Unknown]
  - Nausea [Unknown]
  - Osteoarthritis [Unknown]
  - Osteopenia [Unknown]
  - Osteosclerosis [Unknown]
  - Pain [Unknown]
  - Pain in extremity [Unknown]
  - Pleural fibrosis [Unknown]
  - Epigastric discomfort [Unknown]
  - Rheumatoid arthritis [Unknown]
  - Skin lesion [Unknown]
  - Hospitalisation [Unknown]
  - Diarrhoea [Unknown]
  - Drug hypersensitivity [Unknown]
  - Arthropathy [Unknown]
  - Arthralgia [Unknown]
  - Renal impairment [Unknown]
  - Adverse drug reaction [Unknown]
  - Adverse reaction [Unknown]
  - Treatment failure [Unknown]
  - Drug ineffective [Unknown]
  - Therapeutic product effect decreased [Unknown]
  - Contraindicated product administered [Unknown]
  - Therapeutic product effect decreased [Unknown]
